FAERS Safety Report 7056805-4 (Version None)
Quarter: 2010Q4

REPORT INFORMATION
  Report Type: 
  Country: None (occurrence: None)
  Receive Date: 20101022
  Receipt Date: 20101018
  Transmission Date: 20110411
  Serious: Yes (Hospitalization)
  Sender: FDA-Public Use
  Company Number: US-SHIRE-SPV1-2010-01274

PATIENT

DRUGS (3)
  1. VYVANSE [Suspect]
     Indication: ATTENTION DEFICIT/HYPERACTIVITY DISORDER
     Dosage: 70 MG, 1X/DAY:QD
     Route: 048
     Dates: start: 20080808, end: 20100623
  2. VYVANSE [Suspect]
     Dosage: 20 MG, 1X/DAY:QD
     Route: 048
     Dates: start: 20101006, end: 20101001
  3. VYVANSE [Suspect]
     Dosage: UNK MG, 1X/DAY:QD
     Route: 048
     Dates: start: 20101001

REACTIONS (5)
  - DERMATITIS EXFOLIATIVE [None]
  - DYSPNOEA [None]
  - LARYNGEAL OEDEMA [None]
  - OFF LABEL USE [None]
  - PRURITUS [None]
